FAERS Safety Report 18963392 (Version 2)
Quarter: 2021Q3

REPORT INFORMATION
  Report Type: Other
  Country: US (occurrence: US)
  Receive Date: 20210303
  Receipt Date: 20210928
  Transmission Date: 20211014
  Serious: Yes (Other)
  Sender: FDA-Public Use
  Company Number: US-ROCHE-2773692

PATIENT
  Sex: Male

DRUGS (1)
  1. ESBRIET [Suspect]
     Active Substance: PIRFENIDONE
     Indication: IDIOPATHIC PULMONARY FIBROSIS
     Dosage: TAKE 3 TABLET(S) BY MOUTH IN THE MORNING, TAKE 2 TABLET(S) BY MOUTH AT NOON AND TAKE 3 TABLET(S) BY
     Route: 048

REACTIONS (2)
  - Intentional product misuse [Unknown]
  - Pulmonary hypertension [Unknown]
